FAERS Safety Report 6878409-6 (Version None)
Quarter: 2010Q3

REPORT INFORMATION
  Report Type: 
  Country: None (occurrence: None)
  Receive Date: 20100728
  Receipt Date: 20100713
  Transmission Date: 20110219
  Serious: Yes (Hospitalization)
  Sender: FDA-Public Use
  Company Number: BR-MEDIMMUNE-MEDI-0011447

PATIENT
  Sex: Male
  Weight: 4.5 kg

DRUGS (7)
  1. SYNAGIS [Suspect]
     Indication: BRONCHOPULMONARY DYSPLASIA
     Route: 030
     Dates: start: 20100524, end: 20100524
  2. SYNAGIS [Suspect]
  3. HYDROCORTISONE LIQUID [Concomitant]
     Indication: BLOOD PRESSURE
     Route: 048
     Dates: start: 20100106
  4. SPIRONOLACTONE [Concomitant]
     Route: 048
     Dates: start: 20100106
  5. RANITADINE [Concomitant]
     Route: 048
     Dates: start: 20100601
  6. PROTOVIT [Concomitant]
     Indication: VITAMIN SUPPLEMENTATION
     Route: 048
  7. FERROUS SULFATE [Concomitant]
     Indication: APPETITE DISORDER
     Route: 048

REACTIONS (5)
  - COUGH [None]
  - DYSPNOEA [None]
  - FATIGUE [None]
  - OBSTRUCTIVE AIRWAYS DISORDER [None]
  - PULMONARY CONGESTION [None]
